FAERS Safety Report 6601951-X (Version None)
Quarter: 2010Q1

REPORT INFORMATION
  Report Type: 
  Country: None (occurrence: None)
  Receive Date: 20100225
  Receipt Date: 20091123
  Transmission Date: 20100710
  Serious: Yes (Other)
  Sender: FDA-Public Use
  Company Number: US-JNJFOC-20091107091

PATIENT
  Age: 32 Year
  Sex: Male
  Weight: 108.86 kg

DRUGS (5)
  1. NUCYNTA [Suspect]
     Indication: PAIN
     Route: 065
  2. PERCOCET [Concomitant]
     Indication: PAIN
     Route: 048
  3. VALIUM [Concomitant]
     Indication: MUSCLE SPASMS
  4. NEXIUM [Concomitant]
     Indication: GASTROOESOPHAGEAL REFLUX DISEASE
  5. SINGULAIR [Concomitant]
     Indication: MULTIPLE ALLERGIES
     Route: 048

REACTIONS (13)
  - ASTHENIA [None]
  - CONFUSIONAL STATE [None]
  - COORDINATION ABNORMAL [None]
  - DIZZINESS [None]
  - DYSPNOEA [None]
  - FEELING COLD [None]
  - GASTROINTESTINAL PAIN [None]
  - HALLUCINATION [None]
  - LOSS OF CONSCIOUSNESS [None]
  - MOOD ALTERED [None]
  - POLLAKIURIA [None]
  - SOMNOLENCE [None]
  - THINKING ABNORMAL [None]
